FAERS Safety Report 5508390-3 (Version None)
Quarter: 2007Q4

REPORT INFORMATION
  Report Type: 
  Country: None (occurrence: None)
  Receive Date: 20071107
  Receipt Date: 20071029
  Transmission Date: 20080405
  Serious: Yes (Hospitalization)
  Sender: FDA-Public Use
  Company Number: PHBS2007IE14404

PATIENT
  Sex: Female

DRUGS (2)
  1. COMTAN [Suspect]
     Indication: PARKINSON'S DISEASE
     Dosage: UNK, UNK
     Route: 048
  2. ANTIBIOTICS [Concomitant]
     Indication: URINARY TRACT INFECTION
     Route: 065

REACTIONS (2)
  - FEELING ABNORMAL [None]
  - URINARY TRACT INFECTION [None]
